FAERS Safety Report 10755305 (Version 1)
Quarter: 2015Q1

REPORT INFORMATION
  Report Type: Report from Study
  Country: CA (occurrence: CA)
  Receive Date: 20150202
  Receipt Date: 20150202
  Transmission Date: 20150721
  Serious: Yes (Hospitalization)
  Sender: FDA-Public Use
  Company Number: CA-JNJFOC-20150114910

PATIENT
  Sex: Female
  Weight: 150 kg

DRUGS (3)
  1. PREDNISONE. [Suspect]
     Active Substance: PREDNISONE
     Indication: PRODUCT USED FOR UNKNOWN INDICATION
     Dosage: SUMMER 2014
     Route: 065
     Dates: start: 2014, end: 201411
  2. IMURAN [Suspect]
     Active Substance: AZATHIOPRINE
     Indication: PANCREATITIS
     Route: 065
  3. REMICADE [Suspect]
     Active Substance: INFLIXIMAB
     Indication: CROHN^S DISEASE
     Route: 042
     Dates: start: 2009

REACTIONS (3)
  - Weight increased [Unknown]
  - Crohn^s disease [Unknown]
  - Pancreatitis [Unknown]
